FAERS Safety Report 5671717-6 (Version None)
Quarter: 2008Q2

REPORT INFORMATION
  Report Type: 
  Country: None (occurrence: None)
  Receive Date: 20080229
  Receipt Date: 20071204
  Transmission Date: 20081010
  Serious: Yes (Other)
  Sender: FDA-Public Use
  Company Number: PHEH2007US15488

PATIENT
  Age: 54 Year
  Sex: Female
  Weight: 38 kg

DRUGS (1)
  1. EXJADE [Suspect]
     Indication: IRON METABOLISM DISORDER
     Dosage: 750MG, QD, ORAL; 1000MG, QD, ORAL
     Route: 048
     Dates: start: 20061106

REACTIONS (5)
  - BLOOD CREATININE INCREASED [None]
  - GLOMERULAR FILTRATION RATE DECREASED [None]
  - PLATELET COUNT INCREASED [None]
  - RENAL DISORDER [None]
  - SERUM FERRITIN ABNORMAL [None]
